FAERS Safety Report 9962916 (Version 2)
Quarter: 2014Q1

REPORT INFORMATION
  Report Type: Report from Study
  Country: US (occurrence: US)
  Receive Date: 20140305
  Receipt Date: 20140305
  Transmission Date: 20141002
  Serious: No
  Sender: FDA-Public Use
  Company Number: US-ABBVIE-13P-163-1075553-00

PATIENT
  Age: 54 Year
  Sex: Female

DRUGS (9)
  1. HUMIRA [Suspect]
     Indication: PSORIASIS
     Dosage: LOADING DOSE
     Dates: start: 20130403
  2. PREDNISONE [Concomitant]
     Indication: PRODUCT USED FOR UNKNOWN INDICATION
     Dosage: 1-1/2 TABLETS
  3. PREDNISONE [Concomitant]
  4. OXYCONTIN [Concomitant]
     Indication: PAIN
     Dosage: 5/325 MG
  5. AMLODIPINE [Concomitant]
     Indication: HYPERTENSION
  6. AMLODIPINE [Concomitant]
  7. METHOTREXATE [Concomitant]
     Indication: PRODUCT USED FOR UNKNOWN INDICATION
     Dosage: 4 TABS EVERY OTHER WEEK ON FRIDAY
  8. FOLIC ACID [Concomitant]
     Indication: PRODUCT USED FOR UNKNOWN INDICATION
     Dosage: AT NIGHT
  9. CLOBETASOL [Concomitant]
     Indication: PSORIASIS
     Dosage: AT BEDTIME FOR HANDS AND FEET

REACTIONS (6)
  - Pain [Not Recovered/Not Resolved]
  - Injection site pain [Recovered/Resolved]
  - Headache [Recovered/Resolved]
  - Arthralgia [Not Recovered/Not Resolved]
  - Psoriatic arthropathy [Unknown]
  - Pustular psoriasis [Unknown]
